FAERS Safety Report 7809492-9 (Version None)
Quarter: 2011Q4

REPORT INFORMATION
  Report Type: 
  Country: None (occurrence: None)
  Receive Date: 20111012
  Receipt Date: 20111005
  Transmission Date: 20120403
  Serious: Yes (Hospitalization)
  Sender: FDA-Public Use
  Company Number: DE-ABBOTT-11P-062-0699811-00

PATIENT
  Sex: Male

DRUGS (5)
  1. HUMIRA [Suspect]
     Dosage: WEEK TWO
     Route: 058
  2. OMEPRAZOLE [Concomitant]
     Indication: PRODUCT USED FOR UNKNOWN INDICATION
     Route: 048
  3. HUMIRA [Suspect]
     Route: 058
     Dates: start: 20101215, end: 20110801
  4. HUMIRA [Suspect]
     Dates: start: 20110901
  5. HUMIRA [Suspect]
     Indication: CROHN'S DISEASE
     Dosage: INITIAL DOSE, WEEK ZERO
     Route: 058

REACTIONS (4)
  - BILIARY DRAINAGE [None]
  - BILIARY COLIC [None]
  - ADHESION [None]
  - CHOLECYSTECTOMY [None]
